FAERS Safety Report 4975120-3 (Version None)
Quarter: 2006Q2

REPORT INFORMATION
  Report Type: 
  Country: None (occurrence: None)
  Receive Date: 20060414
  Receipt Date: 20060414
  Transmission Date: 20061013
  Serious: Yes (Disabling)
  Sender: FDA-Public Use
  Company Number: None

PATIENT
  Age: 44 Year
  Sex: Female
  Weight: 61.2 kg

DRUGS (1)
  1. CIPRO [Suspect]
     Indication: ENDOMETRIOSIS
     Dosage: 400 MG ONE TIME IV
     Route: 042
     Dates: start: 20060324, end: 20060324

REACTIONS (1)
  - RASH GENERALISED [None]
